FAERS Safety Report 24435307 (Version 1)
Quarter: 2024Q4

REPORT INFORMATION
  Report Type: Spontaneous
  Country: FR (occurrence: FR)
  Receive Date: 20241015
  Receipt Date: 20241015
  Transmission Date: 20250115
  Serious: Yes (Hospitalization)
  Sender: ACCORD
  Company Number: None

PATIENT
  Age: 75 Year
  Sex: Female

DRUGS (5)
  1. ATORVASTATIN [Suspect]
     Active Substance: ATORVASTATIN
     Indication: Hypercholesterolaemia
     Dosage: 1/DAY
  2. METFORMIN [Suspect]
     Active Substance: METFORMIN HYDROCHLORIDE
     Indication: Diabetes mellitus
     Dates: end: 20240806
  3. BENSERAZIDE HYDROCHLORIDE\LEVODOPA [Suspect]
     Active Substance: BENSERAZIDE HYDROCHLORIDE\LEVODOPA
     Indication: Parkinson^s disease
     Dates: start: 20240418, end: 20240726
  4. SERTRALINE [Suspect]
     Active Substance: SERTRALINE HYDROCHLORIDE
     Indication: Depression
  5. ALPRAZOLAM [Suspect]
     Active Substance: ALPRAZOLAM
     Indication: Depression

REACTIONS (2)
  - General physical health deterioration [Recovered/Resolved]
  - Cholestasis [Not Recovered/Not Resolved]

NARRATIVE: CASE EVENT DATE: 20240709
